FAERS Safety Report 13359560 (Version 1)
Quarter: 2017Q1

REPORT INFORMATION
  Report Type: Report from Study
  Country: US (occurrence: US)
  Receive Date: 20170322
  Receipt Date: 20170322
  Transmission Date: 20170429
  Serious: Yes (Other)
  Sender: FDA-Public Use
  Company Number: US-OREXIGEN THERAPEUTICS, INC.-1064512

PATIENT
  Sex: Female

DRUGS (1)
  1. CONTRAVE [Suspect]
     Active Substance: BUPROPION HYDROCHLORIDE\NALTREXONE HYDROCHLORIDE
     Indication: WEIGHT CONTROL
     Route: 065
     Dates: start: 20170203, end: 20170218

REACTIONS (4)
  - Dizziness [Not Recovered/Not Resolved]
  - Visual impairment [Unknown]
  - Blood pressure decreased [Unknown]
  - Nail discolouration [Unknown]

NARRATIVE: CASE EVENT DATE: 20170203
